FAERS Safety Report 12741965 (Version 2)
Quarter: 2016Q4

REPORT INFORMATION
  Report Type: Spontaneous
  Country: GB (occurrence: GB)
  Receive Date: 20160914
  Receipt Date: 20161003
  Transmission Date: 20170207
  Serious: Yes (Life-Threatening, Hospitalization, Disabling)
  Sender: FDA-Public Use
  Company Number: GB-TEVA-692441ACC

PATIENT
  Age: 50 Year
  Sex: Male
  Weight: 81 kg

DRUGS (9)
  1. DEXAMETHASONE. [Concomitant]
     Active Substance: DEXAMETHASONE
  2. ETOPOSIDE. [Concomitant]
     Active Substance: ETOPOSIDE
  3. ONDANSETRON [Concomitant]
     Active Substance: ONDANSETRON
  4. FILGRASTIM [Concomitant]
     Active Substance: FILGRASTIM
  5. CISPLATIN. [Suspect]
     Active Substance: CISPLATIN
     Indication: TESTICULAR CANCER METASTATIC
     Dosage: 20 MG/M2 DAILY; FOR 5 DAYS
     Route: 042
     Dates: start: 20160801, end: 20160805
  6. AMLODIPINE [Concomitant]
     Active Substance: AMLODIPINE BESYLATE
  7. CISPLATIN. [Suspect]
     Active Substance: CISPLATIN
     Indication: TESTICULAR CANCER METASTATIC
     Dosage: 20 MG/M2 DAILY;
     Route: 042
     Dates: start: 201607
  8. APREPITANT. [Concomitant]
     Active Substance: APREPITANT
  9. CYCLIZINE [Concomitant]
     Active Substance: CYCLIZINE

REACTIONS (3)
  - Intestinal infarction [Recovered/Resolved with Sequelae]
  - Abdominal pain [Unknown]
  - Mesenteric artery thrombosis [Unknown]

NARRATIVE: CASE EVENT DATE: 20160808
